FAERS Safety Report 13946507 (Version 4)
Quarter: 2018Q1

REPORT INFORMATION
  Report Type: Spontaneous
  Country: US (occurrence: US)
  Receive Date: 20170907
  Receipt Date: 20180226
  Transmission Date: 20180508
  Serious: No
  Sender: FDA-Public Use
  Company Number: US-ACTELION-A-US2017-159125

PATIENT
  Age: 68 Year
  Sex: Female

DRUGS (1)
  1. VELETRI [Suspect]
     Active Substance: EPOPROSTENOL
     Indication: PULMONARY ARTERIAL HYPERTENSION
     Dosage: 24 NG/KG, PER MIN
     Route: 042
     Dates: start: 20161223

REACTIONS (6)
  - Nausea [Unknown]
  - Abdominal distension [Unknown]
  - Dyspnoea [Unknown]
  - Flatulence [Unknown]
  - Fatigue [Unknown]
  - Diarrhoea [Unknown]
